FAERS Safety Report 4678071-7 (Version None)
Quarter: 2005Q2

REPORT INFORMATION
  Report Type: 
  Country: None (occurrence: None)
  Receive Date: 20050527
  Receipt Date: 20050527
  Transmission Date: 20051028
  Serious: Yes (Disabling)
  Sender: FDA-Public Use
  Company Number: None

PATIENT
  Sex: Female
  Weight: 34.0198 kg

DRUGS (2)
  1. DEPO-PROVERA [Suspect]
     Dosage: 150 MG/2 MO. IV
     Route: 042
     Dates: start: 19900801, end: 20011201
  2. . [Concomitant]

REACTIONS (16)
  - ALOPECIA [None]
  - ARTHRALGIA [None]
  - BACK PAIN [None]
  - CONDITION AGGRAVATED [None]
  - DRUG PRESCRIBING ERROR [None]
  - HEADACHE [None]
  - HYPERTRICHOSIS [None]
  - INCORRECT DOSE ADMINISTERED [None]
  - INCORRECT DRUG ADMINISTRATION DURATION [None]
  - OSTEOPOROSIS [None]
  - PELVIC PAIN [None]
  - PREMATURE MENOPAUSE [None]
  - SENSATION OF PRESSURE [None]
  - TEETH BRITTLE [None]
  - TOOTH FRACTURE [None]
  - WEIGHT INCREASED [None]
